FAERS Safety Report 9317932 (Version 1)
Quarter: 2013Q2

REPORT INFORMATION
  Report Type: Spontaneous
  Country: US (occurrence: US)
  Receive Date: 20130530
  Receipt Date: 20130530
  Transmission Date: 20140414
  Serious: No
  Sender: FDA-Public Use
  Company Number: US-GLAXOSMITHKLINE-A0996471A

PATIENT
  Age: 53 Year
  Sex: Female

DRUGS (8)
  1. VENTOLIN [Suspect]
     Indication: ASTHMA
     Dosage: 1PUFF FOUR TIMES PER DAY
     Route: 055
  2. ADVAIR [Concomitant]
  3. NEBULIZER [Concomitant]
  4. MULTIVITAMIN [Concomitant]
  5. VITAMIN D [Concomitant]
  6. Q-10 [Concomitant]
  7. FLAX SEED [Concomitant]
  8. FISH OIL [Concomitant]

REACTIONS (3)
  - Asthma [Recovering/Resolving]
  - Drug ineffective [Unknown]
  - Product quality issue [Unknown]
